FAERS Safety Report 26120907 (Version 1)
Quarter: 2025Q4

REPORT INFORMATION
  Report Type: Report from Study
  Country: EU (occurrence: EU)
  Receive Date: 20251204
  Receipt Date: 20251204
  Transmission Date: 20260117
  Serious: Yes (Disabling)
  Sender: EMD SERONO INC
  Company Number: EU-Merck Healthcare KGaA-2025061459

PATIENT
  Age: 60 Year
  Sex: Female

DRUGS (2)
  1. REBIF [Suspect]
     Active Substance: INTERFERON BETA-1A
     Indication: Multiple sclerosis
     Dates: start: 201708, end: 202510
  2. REBIF [Suspect]
     Active Substance: INTERFERON BETA-1A

REACTIONS (2)
  - Deafness [Unknown]
  - Multiple sclerosis relapse [Not Recovered/Not Resolved]
